FAERS Safety Report 17658591 (Version 1)
Quarter: 2020Q2

REPORT INFORMATION
  Report Type: Spontaneous
  Country: US (occurrence: US)
  Receive Date: 20200412
  Receipt Date: 20200412
  Transmission Date: 20200713
  Serious: No
  Sender: FDA-Public Use
  Company Number: US-SA-2020SA090161

PATIENT
  Sex: Female

DRUGS (1)
  1. NASACORT ALLERGY 24HR [Suspect]
     Active Substance: TRIAMCINOLONE ACETONIDE

REACTIONS (6)
  - Feeling abnormal [Unknown]
  - Oropharyngeal discomfort [Unknown]
  - Headache [Unknown]
  - Eye irritation [Unknown]
  - Nasal congestion [Unknown]
  - Nasal discomfort [Unknown]
